FAERS Safety Report 24376677 (Version 1)
Quarter: 2024Q3

REPORT INFORMATION
  Report Type: Spontaneous
  Country: US (occurrence: None)
  Receive Date: 20240927
  Receipt Date: 20240927
  Transmission Date: 20241016
  Serious: Yes (Death)
  Sender: Public
  Company Number: None

PATIENT
  Age: 60 Year
  Sex: Male
  Weight: 69.9 kg

DRUGS (1)
  1. VANCOMYCIN [Suspect]
     Active Substance: VANCOMYCIN
     Indication: Chills
     Dosage: 1000 MG ONCE INTRAVENOUS DRIP
     Route: 041
     Dates: start: 20240712, end: 20240923

REACTIONS (8)
  - Vomiting [None]
  - Hyperhidrosis [None]
  - Unresponsive to stimuli [None]
  - Pulse absent [None]
  - Pruritus [None]
  - Urticaria [None]
  - Hypotension [None]
  - Lethargy [None]

NARRATIVE: CASE EVENT DATE: 20240923
